FAERS Safety Report 12159504 (Version 1)
Quarter: 2016Q1

REPORT INFORMATION
  Report Type: Spontaneous
  Country: PL (occurrence: PL)
  Receive Date: 20160308
  Receipt Date: 20160308
  Transmission Date: 20160526
  Serious: Yes (Other)
  Sender: FDA-Public Use
  Company Number: PL-GLAXOSMITHKLINE-PL2015GSK183525

PATIENT
  Age: 69 Year
  Sex: Female

DRUGS (4)
  1. AMITRIPTYLINE [Concomitant]
     Active Substance: AMITRIPTYLINE
  2. PRAMOLAN [Concomitant]
  3. LAMITRIN [Suspect]
     Active Substance: LAMOTRIGINE
     Indication: POLYNEUROPATHY
     Dosage: 100 MG, BID
  4. HYDROXYZINE [Concomitant]
     Active Substance: HYDROXYZINE\HYDROXYZINE HYDROCHLORIDE

REACTIONS (8)
  - Pruritus generalised [Unknown]
  - Polyneuropathy [Unknown]
  - Nasal discomfort [Unknown]
  - Oral discomfort [Unknown]
  - Burning sensation [Unknown]
  - Condition aggravated [Unknown]
  - Pruritus [Unknown]
  - Gait disturbance [Unknown]
